FAERS Safety Report 4546090-7 (Version None)
Quarter: 2005Q1

REPORT INFORMATION
  Report Type: 
  Country: None (occurrence: None)
  Receive Date: 20050106
  Receipt Date: 20040723
  Transmission Date: 20050727
  Serious: Yes (Life-Threatening, Other)
  Sender: FDA-Public Use
  Company Number: JP-BRISTOL-MYERS SQUIBB COMPANY-12656161

PATIENT
  Age: 50 Year
  Sex: Male

DRUGS (3)
  1. LASTET [Suspect]
     Indication: EWING'S SARCOMA
     Route: 042
     Dates: start: 20011217, end: 20011219
  2. IFOMIDE [Suspect]
     Indication: EWING'S SARCOMA
     Route: 042
     Dates: start: 20011217, end: 20011221
  3. ADRIACIN [Suspect]
     Indication: EWING'S SARCOMA
     Route: 042
     Dates: start: 20011220, end: 20011221

REACTIONS (7)
  - BLOOD PRESSURE DECREASED [None]
  - METASTASES TO BONE [None]
  - METASTASIS [None]
  - NEUTROPENIA [None]
  - PANCYTOPENIA [None]
  - PNEUMONIA [None]
  - PYREXIA [None]
